FAERS Safety Report 19172463 (Version 1)
Quarter: 2021Q2

REPORT INFORMATION
  Report Type: Spontaneous
  Country: US (occurrence: US)
  Receive Date: 20210422
  Receipt Date: 20210422
  Transmission Date: 20210717
  Serious: No
  Sender: FDA-Public Use
  Company Number: None

PATIENT
  Age: 42 Year
  Sex: Female
  Weight: 55.8 kg

DRUGS (6)
  1. EMGALITY [Suspect]
     Active Substance: GALCANEZUMAB-GNLM
     Indication: MIGRAINE
     Dosage: ?          OTHER FREQUENCY:EVERY 28 DAYS;?
     Route: 058
     Dates: start: 20201124
  2. BOTULINUM TOXIN A Q3MONTHS [Concomitant]
  3. RIZATRIPTAN 10MG ODT PRN [Concomitant]
  4. BIOTIN 1MG QAM [Concomitant]
  5. CITIRIZINE 10MG QD PRN [Concomitant]
  6. VIT D3 400MG QAM [Concomitant]

REACTIONS (1)
  - Tinnitus [None]

NARRATIVE: CASE EVENT DATE: 20201124
